FAERS Safety Report 9295715 (Version 1)
Quarter: 2013Q1

REPORT INFORMATION
  Report Type: Spontaneous
  Country: US (occurrence: US)
  Receive Date: 20130107
  Receipt Date: 20130107
  Transmission Date: 20140127
  Serious: Yes (Hospitalization)
  Sender: FDA-Public Use
  Company Number: PHHY2012US102093

PATIENT
  Age: 63 Year
  Sex: Male

DRUGS (16)
  1. GILENYA [Suspect]
     Indication: MULTIPLE SCLEROSIS
     Route: 048
     Dates: start: 20110512
  2. CYMBALTA (DULOXETINE HYDROCHLORIDE) [Concomitant]
  3. LAMICTAL (LAMOTRIGINE) [Concomitant]
  4. CALTRATE (CALCIUM CARBONATE) [Concomitant]
  5. AMRIX (CYCLOBENZAPRINE HYDROCHLORIDE) [Concomitant]
  6. BONIVA (IBANDRONATE SODIUM) [Concomitant]
  7. ARICEPT (DONEPEZIL HYDROCHLORIDE) [Concomitant]
  8. IBUPROFEN (IBUPROFEN) [Concomitant]
  9. SYNTHROID (LEVOTHYYROXINE SODIUM) [Concomitant]
  10. MULTIVITAMINS (ASCORBIC ACID, ERGOCALCIFEROL, FOLIC ACID, NICOTINAMIDE, PANTHENOL, RETINOL, ROBOFLAVIN, THIAMINE HYDROCHLORIDE) [Concomitant]
  11. OMEGA 3 ( FISH OIL) [Concomitant]
  12. ANDROGEL (TESTOSTERONE) [Concomitant]
  13. LEVOTHYROXINE (LEVOTHYROXINE) [Concomitant]
  14. CALCIUM (CALCIUM) [Concomitant]
  15. VITAMIN B COMPLEX (VITAMIN B COMPLEX) [Concomitant]
  16. VITAMIN D (ERGOCALCIFEROL) [Concomitant]

REACTIONS (9)
  - Herpes zoster [None]
  - Hypertension [None]
  - Micturition urgency [None]
  - Red blood cell sedimentation rate increased [None]
  - Protein total decreased [None]
  - Haematocrit decreased [None]
  - Mean cell haemoglobin [None]
  - Mean platelet volume decreased [None]
  - Haemoglobin decreased [None]
